FAERS Safety Report 4684134-2 (Version None)
Quarter: 2005Q2

REPORT INFORMATION
  Report Type: 
  Country: None (occurrence: None)
  Receive Date: 20050526
  Receipt Date: 20040728
  Transmission Date: 20051028
  Serious: Yes (Other)
  Sender: FDA-Public Use
  Company Number: 04-07-1100

PATIENT
  Age: 49 Year
  Sex: Female
  Weight: 77.1115 kg

DRUGS (1)
  1. CEPHALEXIN [Suspect]
     Dosage: 500MG BID ORAL
     Route: 048

REACTIONS (1)
  - CLOSTRIDIUM COLITIS [None]
